FAERS Safety Report 6028136-2 (Version None)
Quarter: 2009Q1

REPORT INFORMATION
  Report Type: 
  Country: None (occurrence: None)
  Receive Date: 20090105
  Receipt Date: 20090105
  Transmission Date: 20090719
  Serious: Yes (Other)
  Sender: FDA-Public Use
  Company Number: None

PATIENT
  Sex: Male

DRUGS (2)
  1. LAMICTAL [Suspect]
     Indication: ANXIETY
     Dosage: 200MG QHS
  2. LAMICTAL [Suspect]
     Indication: DEPRESSION
     Dosage: 200MG QHS

REACTIONS (4)
  - AFFECTIVE DISORDER [None]
  - DRUG INEFFECTIVE [None]
  - PERFORMANCE STATUS DECREASED [None]
  - THERAPEUTIC RESPONSE UNEXPECTED WITH DRUG SUBSTITUTION [None]
